FAERS Safety Report 7420805-2 (Version None)
Quarter: 2011Q2

REPORT INFORMATION
  Report Type: 
  Country: None (occurrence: None)
  Receive Date: 20110418
  Receipt Date: 20110412
  Transmission Date: 20111010
  Serious: Yes (Disabling, Other)
  Sender: FDA-Public Use
  Company Number: PT-ROCHE-768986

PATIENT
  Age: 63 Year
  Sex: Female
  Weight: 78 kg

DRUGS (6)
  1. XELODA [Suspect]
     Indication: BREAST CANCER METASTATIC
     Route: 048
     Dates: start: 20100825
  2. CAL D [Concomitant]
     Dosage: FOR A LONG TIME
     Route: 048
  3. XELODA [Suspect]
     Route: 048
     Dates: start: 20110410
  4. XELODA [Suspect]
     Dosage: 3 TABLETS IN THE MORNING PLUS 3 TABLETS IN THE EVENING. DOSE REDUCED
     Route: 048
     Dates: start: 20100926
  5. ZOMETA [Concomitant]
     Route: 042
     Dates: start: 20060101
  6. PAROXETINE [Concomitant]
     Dosage: HALF TABLET IN THE MORNING
     Route: 048
     Dates: start: 20070101

REACTIONS (6)
  - MALAISE [None]
  - MUSCULOSKELETAL PAIN [None]
  - OROPHARYNGEAL PAIN [None]
  - NASOPHARYNGITIS [None]
  - VISUAL IMPAIRMENT [None]
  - PALMAR-PLANTAR ERYTHRODYSAESTHESIA SYNDROME [None]
